FAERS Safety Report 12168485 (Version 3)
Quarter: 2016Q2

REPORT INFORMATION
  Report Type: Spontaneous
  Country: US (occurrence: US)
  Receive Date: 20160310
  Receipt Date: 20160623
  Transmission Date: 20160815
  Serious: Yes (Hospitalization)
  Sender: FDA-Public Use
  Company Number: US-ACTELION-A-US2016-132462

PATIENT
  Age: 59 Year
  Sex: Female

DRUGS (11)
  1. SILDENAFIL. [Concomitant]
     Active Substance: SILDENAFIL
  2. LEVOTHYROXINE. [Concomitant]
     Active Substance: LEVOTHYROXINE
  3. LASIX [Concomitant]
     Active Substance: FUROSEMIDE
  4. ADDERALL [Concomitant]
     Active Substance: AMPHETAMINE ASPARTATE\AMPHETAMINE SULFATE\DEXTROAMPHETAMINE SACCHARATE\DEXTROAMPHETAMINE SULFATE
  5. LAMICTAL [Concomitant]
     Active Substance: LAMOTRIGINE
  6. CYMBALTA [Concomitant]
     Active Substance: DULOXETINE HYDROCHLORIDE
  7. OPSUMIT [Suspect]
     Active Substance: MACITENTAN
     Indication: PULMONARY ARTERIAL HYPERTENSION
     Dosage: 10 MG, QD
     Route: 048
     Dates: start: 20160105
  8. PREDNISONE. [Concomitant]
     Active Substance: PREDNISONE
  9. POTASSIUM [Concomitant]
     Active Substance: POTASSIUM
  10. FOLIC ACID. [Concomitant]
     Active Substance: FOLIC ACID
  11. ARAVA [Concomitant]
     Active Substance: LEFLUNOMIDE

REACTIONS (10)
  - Pulmonary hypertension [Unknown]
  - Brain natriuretic peptide abnormal [Unknown]
  - Leukocytosis [Unknown]
  - Cardiac failure congestive [Recovered/Resolved]
  - Interstitial lung disease [Unknown]
  - Hypervolaemia [Unknown]
  - Fatigue [Not Recovered/Not Resolved]
  - Anaemia [Unknown]
  - Nausea [Not Recovered/Not Resolved]
  - Acute respiratory failure [Unknown]

NARRATIVE: CASE EVENT DATE: 20160222
